FAERS Safety Report 11522466 (Version 3)
Quarter: 2015Q4

REPORT INFORMATION
  Report Type: Spontaneous
  Country: NL (occurrence: NL)
  Receive Date: 20150918
  Receipt Date: 20151014
  Transmission Date: 20160304
  Serious: Yes (Hospitalization)
  Sender: FDA-Public Use
  Company Number: NL-PFIZER INC-2015308038

PATIENT
  Age: 77 Year
  Sex: Male

DRUGS (14)
  1. LYRICA [Suspect]
     Active Substance: PREGABALIN
     Dosage: 300 MG (4 CAPSULES), UNK
     Route: 048
  2. OXAZEPAM. [Concomitant]
     Active Substance: OXAZEPAM
     Dosage: 10 MG, 1X/DAY
     Route: 048
  3. COLECALCIFEROL [Concomitant]
     Active Substance: CHOLECALCIFEROL
     Dosage: 0.5 ML (50000 IU/ML), 1X/WEEK
     Route: 048
  4. ACENOCOUMAROL [Concomitant]
     Active Substance: ACENOCOUMAROL
     Dosage: 1 MG ACCORDING TO PRESCRIPTION THROMBOSIS SERVICE
  5. BUTRANS [Concomitant]
     Active Substance: BUPRENORPHINE
     Dosage: 1 DF,(10 ?G/H),  WEEKLY
     Route: 062
  6. OXYCODONE [Suspect]
     Active Substance: OXYCODONE
     Dosage: 40 MG (8 TABLETS) , UNK
     Route: 048
  7. MORFIN [Concomitant]
     Active Substance: MORPHINE SULFATE
  8. MOVICOLON [Concomitant]
     Active Substance: POLYETHYLENE GLYCOL 3350\POTASSIUM CHLORIDE\SODIUM BICARBONATE\SODIUM CHLORIDE
     Dosage: 1 DF, 2X/DAY
     Route: 048
  9. MICROLAX [Concomitant]
     Dosage: 1 DF, AS NEEDED
     Route: 054
  10. ALENDRONINEZUUR [Concomitant]
     Dosage: 70 MG, WEEKLY
     Route: 048
  11. LISINOPRIL. [Concomitant]
     Active Substance: LISINOPRIL
     Dosage: 20 MG, 1X/DAY
     Route: 048
  12. HYDROXOCOBALAMINE [Concomitant]
     Dosage: 1000 IU/ML
  13. PARACETAMOL [Concomitant]
     Active Substance: ACETAMINOPHEN
     Dosage: 1000 MG, 3X/DAY
     Route: 048
  14. CALCI CHEW D3 [Concomitant]
     Active Substance: CALCIUM CARBONATE\CHOLECALCIFEROL
     Dosage: 1 DF (500MG/ 800IU), 1X/DAY
     Route: 048

REACTIONS (3)
  - Poisoning [Unknown]
  - Suicide attempt [Unknown]
  - Depressed level of consciousness [Recovered/Resolved]
